FAERS Safety Report 8244114-7 (Version None)
Quarter: 2012Q1

REPORT INFORMATION
  Report Type: 
  Country: None (occurrence: None)
  Receive Date: 20120329
  Receipt Date: 20120326
  Transmission Date: 20120608
  Serious: Yes (Hospitalization)
  Sender: FDA-Public Use
  Company Number: US-PFIZER INC-2012077628

PATIENT
  Sex: Female

DRUGS (2)
  1. SYNTHROID [Concomitant]
     Indication: THYROID DISORDER
     Dosage: 0.175 MG, DAILY
  2. GEODON [Suspect]
     Dosage: 20 MG, 1X/DAY
     Route: 048
     Dates: start: 20120320, end: 20120320

REACTIONS (5)
  - ANAPHYLACTIC REACTION [None]
  - VOMITING [None]
  - DYSPNOEA [None]
  - PRURITUS [None]
  - URTICARIA [None]
